FAERS Safety Report 8397572-1 (Version None)
Quarter: 2012Q2

REPORT INFORMATION
  Report Type: 
  Country: None (occurrence: None)
  Receive Date: 20120524
  Receipt Date: 20120501
  Transmission Date: 20120825
  Serious: Yes (Other)
  Sender: FDA-Public Use
  Company Number: 001222466A

PATIENT
  Age: 14 Year
  Sex: Female

DRUGS (2)
  1. PROACTIV [Suspect]
     Indication: ACNE
     Dosage: ONE DOSE DERMAL
     Dates: start: 20120416
  2. BIRTH CONTROL PILLS [Concomitant]

REACTIONS (5)
  - URTICARIA [None]
  - OEDEMA PERIPHERAL [None]
  - SWELLING FACE [None]
  - HYPERSENSITIVITY [None]
  - LIP SWELLING [None]
